FAERS Safety Report 7213230-0 (Version None)
Quarter: 2010Q4

REPORT INFORMATION
  Report Type: 
  Country: None (occurrence: None)
  Receive Date: 20101229
  Receipt Date: 20101130
  Transmission Date: 20110411
  Serious: Yes (Hospitalization)
  Sender: FDA-Public Use
  Company Number: LEO-2010-01143

PATIENT
  Age: 53 Year
  Sex: Male
  Weight: 122 kg

DRUGS (2)
  1. INNOHEP [Suspect]
     Indication: DEEP VEIN THROMBOSIS
     Dosage: 22500 IU (22500 IU,1 IN 1 D),SUBCUTANEOUS
     Route: 058
     Dates: start: 20051115, end: 20051124
  2. WARFARIN (WARFARIN) (TABLETS) [Concomitant]

REACTIONS (4)
  - ATRIAL FIBRILLATION [None]
  - DISEASE RECURRENCE [None]
  - EMBOLISM VENOUS [None]
  - PULMONARY EMBOLISM [None]
